FAERS Safety Report 4595905-5 (Version None)
Quarter: 2005Q1

REPORT INFORMATION
  Report Type: 
  Country: None (occurrence: None)
  Receive Date: 20050224
  Receipt Date: 20050224
  Transmission Date: 20050727
  Serious: Yes (Death)
  Sender: FDA-Public Use
  Company Number: None

PATIENT
  Sex: Male
  Weight: 123.3784 kg

DRUGS (1)
  1. ADDERALL XR 30 [Suspect]
     Dosage: 1        DAY

REACTIONS (1)
  - NO ADVERSE DRUG EFFECT [None]
